FAERS Safety Report 5467816-4 (Version None)
Quarter: 2007Q3

REPORT INFORMATION
  Report Type: 
  Country: None (occurrence: None)
  Receive Date: 20070820
  Receipt Date: 20070716
  Transmission Date: 20080115
  Serious: No
  Sender: FDA-Public Use
  Company Number: WAES 0707USA02708

PATIENT
  Age: 53 Year
  Sex: Male

DRUGS (5)
  1. JANUVIA [Suspect]
     Dosage: PO
     Route: 048
  2. ALTACE [Concomitant]
  3. VYTORIN [Concomitant]
  4. ASPIRIN [Concomitant]
  5. METFORMIN [Concomitant]

REACTIONS (1)
  - ALOPECIA [None]
